FAERS Safety Report 13078804 (Version 3)
Quarter: 2017Q1

REPORT INFORMATION
  Report Type: Spontaneous
  Country: DK (occurrence: DK)
  Receive Date: 20170102
  Receipt Date: 20170124
  Transmission Date: 20170428
  Serious: Yes (Other)
  Sender: FDA-Public Use
  Company Number: PHHY2016DK176398

PATIENT
  Sex: Male

DRUGS (4)
  1. SERTRALINE [Suspect]
     Active Substance: SERTRALINE HYDROCHLORIDE
     Dosage: 50 MG, UNK
     Route: 065
     Dates: start: 2014
  2. SERTRALINE [Suspect]
     Active Substance: SERTRALINE HYDROCHLORIDE
     Dosage: 100 MG, UNK
     Route: 065
     Dates: start: 2015, end: 2016
  3. SERTRALINE [Suspect]
     Active Substance: SERTRALINE HYDROCHLORIDE
     Indication: DEPRESSION
     Dosage: DOSAGE: SEE NARRATIVE
     Route: 065
     Dates: start: 2013
  4. QUETIAPINE. [Concomitant]
     Active Substance: QUETIAPINE
     Indication: INSOMNIA
     Dosage: 25 MG, FOR THE NIGHT
     Route: 065
     Dates: start: 2015

REACTIONS (24)
  - Nervous system disorder [Not Recovered/Not Resolved]
  - Toxicity to various agents [Unknown]
  - Fear of death [Unknown]
  - Insomnia [Unknown]
  - Somnolence [Unknown]
  - Dizziness [Unknown]
  - Brain injury [Unknown]
  - Language disorder [Not Recovered/Not Resolved]
  - Suicide attempt [Unknown]
  - Asthenia [Unknown]
  - Anaemia [Unknown]
  - Tremor [Unknown]
  - Depression [Unknown]
  - Hyperlipidaemia [Unknown]
  - Erection increased [Unknown]
  - Thinking abnormal [Not Recovered/Not Resolved]
  - Hypercholesterolaemia [Unknown]
  - Headache [Unknown]
  - Learning disorder [Unknown]
  - Painful erection [Unknown]
  - Musculoskeletal disorder [Unknown]
  - Stress [Unknown]
  - Aggression [Unknown]
  - Anxiety [Unknown]
